FAERS Safety Report 13527622 (Version 1)
Quarter: 2017Q2

REPORT INFORMATION
  Report Type: Spontaneous
  Country: US (occurrence: US)
  Receive Date: 20170509
  Receipt Date: 20170509
  Transmission Date: 20170830
  Serious: No
  Sender: FDA-Public Use
  Company Number: US-ALLERGAN-1680927US

PATIENT
  Age: 68 Year
  Sex: Female
  Weight: 58.96 kg

DRUGS (5)
  1. FML FORTE [Suspect]
     Active Substance: FLUOROMETHOLONE
     Indication: EYE IRRITATION
  2. FML FORTE [Suspect]
     Active Substance: FLUOROMETHOLONE
     Indication: CHALAZION
     Dosage: UNK
     Route: 047
     Dates: start: 201611
  3. FML FORTE [Suspect]
     Active Substance: FLUOROMETHOLONE
     Indication: CONJUNCTIVAL IRRITATION
  4. SYSTANE BALANCE [Concomitant]
     Active Substance: PROPYLENE GLYCOL
     Indication: DRY EYE
     Dosage: UNK
     Route: 047
  5. ERYTHROMYCIN. [Concomitant]
     Active Substance: ERYTHROMYCIN
     Indication: PRODUCT USED FOR UNKNOWN INDICATION
     Dosage: UNK
     Route: 047
     Dates: start: 2016, end: 2016

REACTIONS (5)
  - Drug dose omission [Unknown]
  - Product deposit [Unknown]
  - Wrong technique in product usage process [Unknown]
  - Regressive behaviour [Not Recovered/Not Resolved]
  - Off label use [Unknown]

NARRATIVE: CASE EVENT DATE: 201611
